FAERS Safety Report 14349665 (Version 1)
Quarter: 2018Q1

REPORT INFORMATION
  Report Type: Spontaneous
  Country: US (occurrence: US)
  Receive Date: 20180104
  Receipt Date: 20180104
  Transmission Date: 20180509
  Serious: Yes (Other)
  Sender: FDA-Public Use
  Company Number: US-ASTELLAS-2017US055860

PATIENT
  Sex: Male

DRUGS (1)
  1. XTANDI [Suspect]
     Active Substance: ENZALUTAMIDE
     Indication: PROSTATE CANCER
     Route: 048

REACTIONS (5)
  - Chills [Recovered/Resolved]
  - Swelling face [Recovered/Resolved]
  - Swelling [Not Recovered/Not Resolved]
  - Rash generalised [Recovered/Resolved]
  - Erythema [Recovered/Resolved]
